FAERS Safety Report 12413672 (Version 1)
Quarter: 2016Q2

REPORT INFORMATION
  Report Type: Spontaneous
  Country: BE (occurrence: BE)
  Receive Date: 20160527
  Receipt Date: 20160527
  Transmission Date: 20160815
  Serious: Yes (Other)
  Sender: FDA-Public Use
  Company Number: BE-BIOGEN-2016BI00241581

PATIENT
  Age: 53 Year
  Sex: Female

DRUGS (1)
  1. TECFIDERA [Suspect]
     Active Substance: DIMETHYL FUMARATE
     Indication: MULTIPLE SCLEROSIS
     Dosage: 2X240MG
     Route: 048
     Dates: start: 200812

REACTIONS (3)
  - Herpes zoster meningomyelitis [Unknown]
  - Paraesthesia [Unknown]
  - Radiculopathy [Unknown]

NARRATIVE: CASE EVENT DATE: 20160508
